FAERS Safety Report 12673105 (Version 3)
Quarter: 2016Q4

REPORT INFORMATION
  Report Type: Report from Study
  Country: MX (occurrence: MX)
  Receive Date: 20160822
  Receipt Date: 20161011
  Transmission Date: 20170207
  Serious: Yes (Hospitalization, Other)
  Sender: FDA-Public Use
  Company Number: MX-BAYER-2016-156766

PATIENT
  Age: 24 Year
  Sex: Female
  Weight: 62 kg

DRUGS (5)
  1. ALEVIAN DUO [DIMETICONE,PINAVERIUM BROMIDE] [Concomitant]
     Dosage: 1 DF, QD
  2. DOLAC [Concomitant]
     Indication: PAIN
     Dosage: 1 DF, PRN
     Route: 060
  3. BETAFERON [Suspect]
     Active Substance: INTERFERON BETA-1B
     Indication: MULTIPLE SCLEROSIS
     Dosage: 1 DF, QOD
     Dates: start: 20140303
  4. METICORTEN [Concomitant]
     Active Substance: PREDNISONE
     Dosage: 2 DF, UNK
  5. TRIGLYCERIDES [Concomitant]
     Dosage: 1 DF, QD

REACTIONS (14)
  - Gastritis [Not Recovered/Not Resolved]
  - Blood triglycerides increased [Not Recovered/Not Resolved]
  - Irritable bowel syndrome [Not Recovered/Not Resolved]
  - Migraine [Not Recovered/Not Resolved]
  - Hypertension [Not Recovered/Not Resolved]
  - Tachycardia [None]
  - Injection site pain [Not Recovered/Not Resolved]
  - Liver disorder [Not Recovered/Not Resolved]
  - Multiple sclerosis [Not Recovered/Not Resolved]
  - Multiple sclerosis relapse [Not Recovered/Not Resolved]
  - Injection site rash [Not Recovered/Not Resolved]
  - Injection site bruising [Not Recovered/Not Resolved]
  - Multiple sclerosis relapse [Recovered/Resolved]
  - Injection site injury [Not Recovered/Not Resolved]

NARRATIVE: CASE EVENT DATE: 201509
